FAERS Safety Report 15136457 (Version 3)
Quarter: 2018Q3

REPORT INFORMATION
  Report Type: Spontaneous
  Country: IT (occurrence: IT)
  Receive Date: 20180712
  Receipt Date: 20180808
  Transmission Date: 20181010
  Serious: Yes (Death, Other)
  Sender: FDA-Public Use
  Company Number: IT-BAYER-2018-126891

PATIENT
  Age: 75 Year
  Sex: Male

DRUGS (6)
  1. STIVARGA [Suspect]
     Active Substance: REGORAFENIB
     Indication: ADENOCARCINOMA OF COLON
     Dosage: 120 MG, DAILY
     Dates: end: 201706
  2. FOLFOX [Concomitant]
     Active Substance: FLUOROURACIL\LEUCOVORIN CALCIUM\OXALIPLATIN
  3. STIVARGA [Suspect]
     Active Substance: REGORAFENIB
     Indication: ADENOCARCINOMA OF COLON
     Dosage: 120 MG, DAILY
  4. STIVARGA [Suspect]
     Active Substance: REGORAFENIB
     Indication: ADENOCARCINOMA OF COLON
     Dosage: 160 MG, DAILY
  5. STIVARGA [Suspect]
     Active Substance: REGORAFENIB
     Indication: ADENOCARCINOMA OF COLON
     Dosage: 120 MG, DAILY
     Dates: start: 201701
  6. STIVARGA [Suspect]
     Active Substance: REGORAFENIB
     Indication: METASTASES TO LYMPH NODES
     Dosage: 160 MG, DAILY

REACTIONS (10)
  - Palmar-plantar erythrodysaesthesia syndrome [Recovered/Resolved]
  - Dyspnoea [Fatal]
  - Abdominal lymphadenopathy [None]
  - Metastases to lung [Fatal]
  - Hypertension [None]
  - Hypotension [None]
  - Respiratory failure [Fatal]
  - Lymphadenopathy mediastinal [None]
  - Asthenia [Fatal]
  - Pleural effusion [None]

NARRATIVE: CASE EVENT DATE: 201706
